FAERS Safety Report 14632739 (Version 6)
Quarter: 2020Q3

REPORT INFORMATION
  Report Type: Report from Study
  Country: US (occurrence: US)
  Receive Date: 20180313
  Receipt Date: 20200817
  Transmission Date: 20201102
  Serious: Yes (Death, Other)
  Sender: FDA-Public Use
  Company Number: US-TAKEDA-2018TUS005700

PATIENT
  Age: 84 Year
  Sex: Female

DRUGS (3)
  1. PONATINIB [Suspect]
     Active Substance: PONATINIB
     Indication: CHRONIC MYELOID LEUKAEMIA
     Dosage: 15 MILLIGRAM, QD
     Route: 048
     Dates: start: 201508, end: 20180711
  2. PONATINIB [Suspect]
     Active Substance: PONATINIB
     Dosage: 15 MILLIGRAM, QD
     Route: 048
     Dates: start: 20190731
  3. PONATINIB [Suspect]
     Active Substance: PONATINIB
     Dosage: 15 MILLIGRAM, QD
     Route: 048
     Dates: start: 20190801

REACTIONS (7)
  - Nerve compression [Unknown]
  - Bundle branch block [Unknown]
  - Abdominal discomfort [Unknown]
  - Limb injury [Unknown]
  - Death [Fatal]
  - Rash [Unknown]
  - Macular degeneration [Unknown]

NARRATIVE: CASE EVENT DATE: 20200715
